FAERS Safety Report 10143150 (Version 1)
Quarter: 2014Q2

REPORT INFORMATION
  Report Type: Spontaneous
  Country: US (occurrence: None)
  Receive Date: 20140429
  Receipt Date: 20140429
  Transmission Date: 20141212
  Serious: Yes (Disabling)
  Sender: FDA-Public Use
  Company Number: None

PATIENT
  Age: 37 Year
  Sex: Male
  Weight: 80.29 kg

DRUGS (1)
  1. FINASTERIDE [Suspect]
     Indication: ANDROGENETIC ALOPECIA
     Dosage: 1/4 PILL ONCE DAILY TAKEN BY MOUTH.
     Route: 048
     Dates: start: 20140331, end: 20140423

REACTIONS (5)
  - Insomnia [None]
  - Penile pain [None]
  - Premature ejaculation [None]
  - Emotional disorder [None]
  - Sensory loss [None]
